FAERS Safety Report 26135978 (Version 1)
Quarter: 2025Q4

REPORT INFORMATION
  Report Type: Spontaneous
  Country: EU (occurrence: EU)
  Receive Date: 20251209
  Receipt Date: 20251209
  Transmission Date: 20260117
  Serious: Yes (Other)
  Sender: ELI LILLY AND COMPANY
  Company Number: None

PATIENT
  Age: 1 Day

DRUGS (2)
  1. OLUMIANT [Suspect]
     Active Substance: BARICITINIB
     Indication: Dermatitis atopic
     Dosage: 1 DF/J
     Route: 064
     Dates: start: 20220419, end: 202404
  2. OLUMIANT [Suspect]
     Active Substance: BARICITINIB
     Indication: Dermatitis atopic
     Dosage: 1 DF/J
     Route: 064
     Dates: start: 20220419, end: 202404

REACTIONS (6)
  - Foetal growth restriction [Recovered/Resolved]
  - Hypotonia [Recovered/Resolved]
  - Developmental coordination disorder [Not Recovered/Not Resolved]
  - Drug exposure before pregnancy [Recovered/Resolved]
  - Foetal exposure during pregnancy [Recovered/Resolved]
  - Foetal malnutrition [Recovered/Resolved]

NARRATIVE: CASE EVENT DATE: 20240101
